FAERS Safety Report 10360664 (Version 2)
Quarter: 2014Q4

REPORT INFORMATION
  Report Type: Spontaneous
  Country: IT (occurrence: IT)
  Receive Date: 20140804
  Receipt Date: 20141123
  Transmission Date: 20150528
  Serious: Yes (Hospitalization)
  Sender: FDA-Public Use
  Company Number: IT-BRISTOL-MYERS SQUIBB COMPANY-21245741

PATIENT
  Age: 83 Year
  Sex: Male

DRUGS (5)
  1. LASIX - SLOW RELEASE [Concomitant]
  2. EUTIROX [Concomitant]
     Active Substance: LEVOTHYROXINE SODIUM
  3. COUMADIN [Suspect]
     Active Substance: WARFARIN SODIUM
     Indication: CARDIAC VALVE PROSTHESIS USER
     Route: 048
     Dates: start: 19990810, end: 20140722
  4. MODURETIC TABS [Concomitant]
  5. DELTACORTENE [Concomitant]
     Active Substance: PREDNISONE

REACTIONS (2)
  - Fall [Unknown]
  - Retroperitoneal haematoma [Recovering/Resolving]

NARRATIVE: CASE EVENT DATE: 20140723
